FAERS Safety Report 9494711 (Version 1)
Quarter: 2013Q3

REPORT INFORMATION
  Report Type: Spontaneous
  Country: US (occurrence: US)
  Receive Date: 20130903
  Receipt Date: 20130903
  Transmission Date: 20140515
  Serious: Yes (Other)
  Sender: FDA-Public Use
  Company Number: US-PFIZER INC-2013250008

PATIENT
  Age: 12 Year
  Sex: Female
  Weight: 52.15 kg

DRUGS (1)
  1. GENOTROPIN [Suspect]
     Indication: BLOOD GROWTH HORMONE
     Dosage: UNK, 1X/DAY
     Dates: start: 200407

REACTIONS (1)
  - Diabetes mellitus [Unknown]
